FAERS Safety Report 7369580-0 (Version None)
Quarter: 2011Q1

REPORT INFORMATION
  Report Type: 
  Country: None (occurrence: None)
  Receive Date: 20110323
  Receipt Date: 20110317
  Transmission Date: 20110831
  Serious: Yes (Other)
  Sender: FDA-Public Use
  Company Number: US-PFIZER INC-2011062911

PATIENT
  Age: 40 Year
  Sex: Male

DRUGS (3)
  1. GEODON [Suspect]
     Dosage: 20 MG, 1X/DAY
  2. LEXAPRO [Concomitant]
  3. GEODON [Suspect]
     Dosage: UNK
     Dates: start: 20101101

REACTIONS (2)
  - CEREBROVASCULAR ACCIDENT [None]
  - VISION BLURRED [None]
